FAERS Safety Report 9257048 (Version 4)
Quarter: 2013Q3

REPORT INFORMATION
  Report Type: Spontaneous
  Country: JP (occurrence: JP)
  Receive Date: 20130426
  Receipt Date: 20130909
  Transmission Date: 20140515
  Serious: Yes (Hospitalization, Other)
  Sender: FDA-Public Use
  Company Number: JP-OTSUKA-JP-2013-11089

PATIENT
  Age: 98 Year
  Sex: Female
  Weight: 50 kg

DRUGS (10)
  1. SAMSCA [Suspect]
     Indication: CARDIAC FAILURE CONGESTIVE
     Dosage: 7.5 MG MILLIGRAM(S), QD
     Route: 048
     Dates: start: 20130218, end: 20130220
  2. PLETAAL [Concomitant]
     Indication: CEREBRAL INFARCTION
     Dosage: 50 MG MILLIGRAM(S), BID
     Route: 048
     Dates: start: 20121115
  3. MUCOSOLVAN [Concomitant]
     Indication: ASTHMA
     Dosage: 15 MG MILLIGRAM(S), TID
     Route: 048
     Dates: start: 20121115
  4. HOKUNALIN [Concomitant]
     Indication: ASTHMA
     Dosage: 2 MG MILLIGRAM(S), QD
     Route: 061
     Dates: start: 20121115
  5. ZANTAC [Concomitant]
     Indication: GASTRITIS
     Dosage: 150 MG MILLIGRAM(S), QD
     Route: 048
     Dates: start: 20121116
  6. ONON [Concomitant]
     Indication: ASTHMA
     Dosage: 112.5 MG MILLIGRAM(S), BID
     Route: 048
     Dates: start: 20130118
  7. VASOLAN [Concomitant]
     Indication: ATRIAL FIBRILLATION
     Dosage: 40 MG MILLIGRAM(S), BID
     Route: 048
     Dates: start: 20130118
  8. LASIX [Concomitant]
     Indication: CARDIAC FAILURE CONGESTIVE
     Dosage: 10 MG MILLIGRAM(S), 1-2 TIMES/DAY
     Route: 042
     Dates: start: 20130212, end: 20130220
  9. PASIL [Concomitant]
     Indication: PNEUMONIA
     Dosage: 0.5 G GRAM(S), BID
     Route: 042
     Dates: start: 20130215, end: 20130228
  10. INOVAN [Concomitant]
     Dosage: UNK
     Route: 041

REACTIONS (5)
  - Convulsion [Recovered/Resolved]
  - Hemiplegia [Recovered/Resolved]
  - Transient ischaemic attack [Recovered/Resolved]
  - Aphasia [Recovered/Resolved]
  - Gaze palsy [Unknown]
